FAERS Safety Report 6267131-5 (Version None)
Quarter: 2009Q3

REPORT INFORMATION
  Report Type: 
  Country: None (occurrence: None)
  Receive Date: 20090714
  Receipt Date: 20090713
  Transmission Date: 20100115
  Serious: Yes (Other)
  Sender: FDA-Public Use
  Company Number: US-PFIZER INC-2009224188

PATIENT
  Age: 76 Year
  Sex: Female
  Weight: 68.027 kg

DRUGS (2)
  1. LYRICA [Suspect]
     Indication: PAIN
     Dosage: FREQUENCY: 2X/DAY, EVERY DAY;
     Dates: start: 20080801
  2. DARVOCET [Concomitant]
     Dosage: UNK

REACTIONS (3)
  - DEPENDENCE [None]
  - HYPOAESTHESIA [None]
  - PAIN [None]
